FAERS Safety Report 11229881 (Version 1)
Quarter: 2015Q2

REPORT INFORMATION
  Report Type: Spontaneous
  Country: FR (occurrence: FR)
  Receive Date: 20150630
  Receipt Date: 20150630
  Transmission Date: 20150821
  Serious: Yes (Other)
  Sender: FDA-Public Use
  Company Number: FR-009507513-1506FRA014173

PATIENT
  Age: 76 Year
  Sex: Male

DRUGS (7)
  1. DAPTOMYCIN. [Suspect]
     Active Substance: DAPTOMYCIN
     Dosage: 63.9 MICRO-G/ML, UNK
     Route: 042
     Dates: start: 20150603
  2. ATARAX [Concomitant]
     Active Substance: HYDROXYZINE\HYDROXYZINE HYDROCHLORIDE
     Dosage: 25 MG
  3. NOCTAMIDE [Concomitant]
     Active Substance: LORMETAZEPAM
  4. DAPTOMYCIN. [Suspect]
     Active Substance: DAPTOMYCIN
     Indication: PRODUCT USED FOR UNKNOWN INDICATION
     Dosage: 500 MG (8MG/KG), QD
     Route: 042
     Dates: start: 20150519
  5. CEFTAROLINE FOSAMIL/CEFTAROLINE FOSAMIL ACETATE [Concomitant]
     Dosage: 600 MG, BID (TO ADJUST ACCORDING TO PLASMA DOSAGES)
     Dates: start: 20150517, end: 20150520
  6. DAPTOMYCIN. [Suspect]
     Active Substance: DAPTOMYCIN
     Dosage: UNK
     Route: 042
     Dates: start: 20150522
  7. RAMIPRIL. [Concomitant]
     Active Substance: RAMIPRIL
     Dosage: UNK
     Dates: start: 200907, end: 20150518

REACTIONS (2)
  - Blood creatine phosphokinase increased [Not Recovered/Not Resolved]
  - Renal failure [Not Recovered/Not Resolved]

NARRATIVE: CASE EVENT DATE: 20150520
